FAERS Safety Report 7769719-9 (Version None)
Quarter: 2011Q3

REPORT INFORMATION
  Report Type: 
  Country: None (occurrence: None)
  Receive Date: 20110922
  Receipt Date: 20101228
  Transmission Date: 20111222
  Serious: No
  Sender: FDA-Public Use
  Company Number: US-ASTRAZENECA-2010SE13049

PATIENT
  Age: 56 Year
  Sex: Male
  Weight: 104.3 kg

DRUGS (8)
  1. SEROQUEL [Suspect]
     Route: 048
  2. SEROQUEL [Suspect]
     Route: 048
  3. PROZAC [Concomitant]
     Indication: BIPOLAR DISORDER
  4. SEROQUEL [Suspect]
     Indication: BIPOLAR DISORDER
     Route: 048
  5. SEROQUEL [Suspect]
     Route: 048
  6. SEROQUEL [Suspect]
     Indication: SLEEP DISORDER
     Route: 048
  7. SEROQUEL [Suspect]
     Route: 048
  8. ANTACID [Concomitant]
     Indication: HYPERCHLORHYDRIA

REACTIONS (9)
  - WEIGHT DECREASED [None]
  - DIABETES MELLITUS [None]
  - THERAPEUTIC RESPONSE UNEXPECTED [None]
  - INSOMNIA [None]
  - DRUG DOSE OMISSION [None]
  - INCORRECT DOSE ADMINISTERED [None]
  - EX-ALCOHOLIC [None]
  - DROOLING [None]
  - EX-TOBACCO USER [None]
